FAERS Safety Report 17158449 (Version 1)
Quarter: 2019Q4

REPORT INFORMATION
  Report Type: Spontaneous
  Country: US (occurrence: US)
  Receive Date: 20191213
  Receipt Date: 20191213
  Transmission Date: 20200122
  Serious: Yes (Hospitalization)
  Sender: FDA-Public Use
  Company Number: None

PATIENT
  Age: 52 Year
  Sex: Male
  Weight: 108.9 kg

DRUGS (4)
  1. RIVAROXABAN [Suspect]
     Active Substance: RIVAROXABAN
     Indication: ATRIAL FIBRILLATION
     Route: 048
     Dates: start: 20150909
  2. TIOTROPIUM 18MCG INHALATION DAILY [Concomitant]
  3. PROPAFENONE 150MG BID [Concomitant]
  4. LEVOTHYROXINE 112MCG DAILY [Concomitant]

REACTIONS (6)
  - Gastrointestinal haemorrhage [None]
  - Fatigue [None]
  - Abdominal pain [None]
  - Asthenia [None]
  - Large intestine polyp [None]
  - Haematochezia [None]

NARRATIVE: CASE EVENT DATE: 20160204
